FAERS Safety Report 4947533-7 (Version None)
Quarter: 2006Q1

REPORT INFORMATION
  Report Type: 
  Country: None (occurrence: None)
  Receive Date: 20060313
  Receipt Date: 20060228
  Transmission Date: 20060701
  Serious: Yes (Hospitalization)
  Sender: FDA-Public Use
  Company Number: 163-C5013-06030009

PATIENT
  Age: 80 Year
  Sex: Female
  Weight: 79.3795 kg

DRUGS (22)
  1. CC-5013 (CAPSULES) REVLIMID [Suspect]
     Indication: MULTIPLE MYELOMA
     Dosage: 25 MG QD ORAL
     Route: 048
     Dates: start: 20060207, end: 20060225
  2. DEXAMETHASONE [Suspect]
     Indication: MULTIPLE MYELOMA
     Dosage: 40 MG DAILY ON DAYS 1-4, 9-12, 17-20, ORAL
     Route: 048
     Dates: start: 20060207, end: 20060225
  3. ZOMETA [Concomitant]
  4. SYNTHROID [Concomitant]
  5. DITROPAN (OXYUTYNIN) [Concomitant]
  6. VITAMIN C (ASCORIC ACID) [Concomitant]
  7. VITAMIN 12 (CYANOCOBALAMIN) [Concomitant]
  8. CENTRUM [Concomitant]
  9. TORMERIC [Concomitant]
  10. VIVELLE [Concomitant]
  11. CLARINEX [Concomitant]
  12. GLUCOSAMINE W/ CHONDROITIN [Concomitant]
  13. HYDROMORPHONE HCL [Concomitant]
  14. TRAMADOL HCL [Concomitant]
  15. HYDROCODENE [Concomitant]
  16. IBUPROFEN [Concomitant]
  17. CELEBREX [Concomitant]
  18. DARVOCET [Concomitant]
  19. ALEVE [Concomitant]
  20. ACETAMINOPHEN [Concomitant]
  21. PRILOSEC [Concomitant]
  22. PROCRIT [Concomitant]

REACTIONS (16)
  - ACTIVITIES OF DAILY LIVING IMPAIRED [None]
  - ANOREXIA [None]
  - APHAGIA [None]
  - BLOOD CREATININE INCREASED [None]
  - BLOOD POTASSIUM DECREASED [None]
  - BLOOD SODIUM DECREASED [None]
  - BLOOD UREA INCREASED [None]
  - DEHYDRATION [None]
  - ELECTROLYTE IMBALANCE [None]
  - HAEMOGLOBIN DECREASED [None]
  - HYPOCALCAEMIA [None]
  - HYPOKALAEMIA [None]
  - HYPONATRAEMIA [None]
  - NAUSEA [None]
  - RESTLESSNESS [None]
  - WHITE BLOOD CELL COUNT DECREASED [None]
